FAERS Safety Report 8029738-4 (Version None)
Quarter: 2012Q1

REPORT INFORMATION
  Report Type: 
  Country: None (occurrence: None)
  Receive Date: 20120109
  Receipt Date: 20120103
  Transmission Date: 20120608
  Serious: Yes (Hospitalization)
  Sender: FDA-Public Use
  Company Number: CA-BAYER-2011-111629

PATIENT
  Age: 21 Year
  Sex: Female
  Weight: 58.957 kg

DRUGS (1)
  1. YAZ [Suspect]
     Indication: CONTRACEPTION
     Dosage: UNK
     Route: 048
     Dates: start: 20090915, end: 20100201

REACTIONS (3)
  - EOSINOPHILIC CELLULITIS [None]
  - OEDEMA PERIPHERAL [None]
  - BLISTER [None]
